FAERS Safety Report 21887936 (Version 6)
Quarter: 2024Q2

REPORT INFORMATION
  Report Type: Other
  Country: US (occurrence: None)
  Receive Date: 20230120
  Receipt Date: 20240524
  Transmission Date: 20240715
  Serious: Yes (Other)
  Sender: FDA-Public Use
  Company Number: US-ROCHE-2927171

PATIENT
  Age: 86 Year
  Sex: Male

DRUGS (11)
  1. ESBRIET [Suspect]
     Active Substance: PIRFENIDONE
     Indication: Benign neoplasm of prostate
     Dosage: 3 TIMES A DAY WITH FOOD
     Route: 048
     Dates: start: 2018
  2. ESBRIET [Suspect]
     Active Substance: PIRFENIDONE
     Indication: Idiopathic pulmonary fibrosis
  3. LATANOPROST [Concomitant]
     Active Substance: LATANOPROST
  4. AMLODIPINE [Concomitant]
     Active Substance: AMLODIPINE BESYLATE
  5. FAMOTIDINE [Concomitant]
     Active Substance: FAMOTIDINE
  6. APIXABAN [Concomitant]
     Active Substance: APIXABAN
  7. METOPROLOL [Concomitant]
     Active Substance: METOPROLOL
  8. FLUTICASONE [Concomitant]
     Active Substance: FLUTICASONE
  9. ATORVASTATIN [Concomitant]
     Active Substance: ATORVASTATIN
  10. NITROGLYCERIN [Concomitant]
     Active Substance: NITROGLYCERIN
  11. TAMSULOSIN HYDROCHLORIDE [Concomitant]
     Active Substance: TAMSULOSIN HYDROCHLORIDE

REACTIONS (10)
  - Glaucoma [Unknown]
  - Cataract [Recovered/Resolved]
  - Tendon rupture [Unknown]
  - Prostate cancer [Unknown]
  - Pneumonia [Unknown]
  - Palpitations [Unknown]
  - Choking [Unknown]
  - Arthralgia [Unknown]
  - Hypoacusis [Unknown]
  - Visual impairment [Not Recovered/Not Resolved]

NARRATIVE: CASE EVENT DATE: 20230101
